FAERS Safety Report 11018684 (Version 2)
Quarter: 2015Q2

REPORT INFORMATION
  Report Type: Spontaneous
  Country: US (occurrence: US)
  Receive Date: 20150412
  Receipt Date: 20150524
  Transmission Date: 20150821
  Serious: Yes (Hospitalization)
  Sender: FDA-Public Use
  Company Number: US-JNJFOC-20131015465

PATIENT
  Sex: Female
  Weight: 77.11 kg

DRUGS (2)
  1. VITAMIN [Concomitant]
     Active Substance: VITAMINS
     Route: 065
  2. DOXIL [Suspect]
     Active Substance: DOXORUBICIN HYDROCHLORIDE
     Indication: FALLOPIAN TUBE CANCER STAGE III
     Route: 042
     Dates: start: 200805, end: 200810

REACTIONS (9)
  - Pain in extremity [Unknown]
  - Pyrexia [Unknown]
  - Dysstasia [Unknown]
  - Adverse event [Unknown]
  - Skin discolouration [Unknown]
  - Blister [Unknown]
  - Urinary tract infection [Unknown]
  - Pain [Unknown]
  - Gait disturbance [Unknown]

NARRATIVE: CASE EVENT DATE: 2008
